FAERS Safety Report 5533688-2 (Version None)
Quarter: 2007Q4

REPORT INFORMATION
  Report Type: 
  Country: None (occurrence: None)
  Receive Date: 20071129
  Receipt Date: 20071119
  Transmission Date: 20080405
  Serious: No
  Sender: FDA-Public Use
  Company Number: 2007-154288-NL

PATIENT
  Age: 53 Year
  Sex: Female

DRUGS (4)
  1. MIRTAZAPINE [Suspect]
     Indication: DEPRESSION
     Dosage: 15 MG/30 MG
     Dates: end: 20060501
  2. MIRTAZAPINE [Suspect]
     Indication: DEPRESSION
     Dosage: 15 MG/30 MG
     Dates: start: 20060101
  3. HYDROCHLOROTHIAZIDE [Concomitant]
  4. ZOPICLONE [Concomitant]

REACTIONS (3)
  - BACK PAIN [None]
  - GAIT DISTURBANCE [None]
  - MYALGIA [None]
